FAERS Safety Report 19614889 (Version 2)
Quarter: 2021Q3

REPORT INFORMATION
  Report Type: Spontaneous
  Country: EC (occurrence: EC)
  Receive Date: 20210727
  Receipt Date: 20210811
  Transmission Date: 20211014
  Serious: Yes (Death, Other)
  Sender: FDA-Public Use
  Company Number: EC-UCBSA-2021035546

PATIENT
  Age: 83 Year

DRUGS (1)
  1. LEVETIRACETAM. [Suspect]
     Active Substance: LEVETIRACETAM
     Indication: EPILEPSY
     Dosage: UNKNOWN DOSE

REACTIONS (8)
  - Hypoproteinaemia [Unknown]
  - Death [Fatal]
  - Hypokalaemia [Unknown]
  - Blood lactate dehydrogenase increased [Unknown]
  - Pneumonia [Unknown]
  - Atrial fibrillation [Unknown]
  - Hypoalbuminaemia [Unknown]
  - Tachycardia [Unknown]
